FAERS Safety Report 19360701 (Version 1)
Quarter: 2021Q2

REPORT INFORMATION
  Report Type: Spontaneous
  Country: FR (occurrence: FR)
  Receive Date: 20210601
  Receipt Date: 20210601
  Transmission Date: 20210717
  Serious: Yes (Hospitalization)
  Sender: FDA-Public Use
  Company Number: FR-TAKEDA-2021TUS034379

PATIENT
  Age: 85 Year
  Sex: Male
  Weight: 67 kg

DRUGS (3)
  1. BACTRIM [Suspect]
     Active Substance: SULFAMETHOXAZOLE\TRIMETHOPRIM
     Indication: ANTIBIOTIC THERAPY
     Dosage: UNK, QD
     Route: 048
     Dates: start: 20210311, end: 20210504
  2. VELCADE [Suspect]
     Active Substance: BORTEZOMIB
     Indication: PLASMA CELL MYELOMA
     Dosage: UNK, QD
     Route: 065
     Dates: start: 20210226
  3. LENALIDOMIDE [Suspect]
     Active Substance: LENALIDOMIDE
     Indication: PLASMA CELL MYELOMA
     Dosage: UNK, QD
     Route: 048
     Dates: start: 20210422, end: 20210504

REACTIONS (2)
  - Rash maculo-papular [Recovering/Resolving]
  - Eosinophilia [Unknown]

NARRATIVE: CASE EVENT DATE: 20210427
